FAERS Safety Report 6571305-3 (Version None)
Quarter: 2010Q1

REPORT INFORMATION
  Report Type: 
  Country: None (occurrence: None)
  Receive Date: 20100129
  Receipt Date: 20100115
  Transmission Date: 20100710
  Serious: Yes (Hospitalization)
  Sender: FDA-Public Use
  Company Number: 2010010030

PATIENT
  Age: 95 Year
  Sex: Female

DRUGS (5)
  1. TOREM (TORASEMIDE) [Suspect]
     Dosage: 1 DOSAGE FORMS (1 DOSAGE FORMS,1 IN 1 D),ORAL
     Route: 048
     Dates: end: 20091024
  2. SPIRONOLACTONE [Suspect]
     Dosage: 1 DOSAGE FORMS (1 DOSAGE FORMS, 1 IN 1 D),ORAL
     Route: 048
     Dates: end: 20091024
  3. ENALAPRIL MALEATE [Suspect]
     Dosage: 10 MG (10 MG,1 IN 1 D),ORAL
     Route: 048
     Dates: end: 20091024
  4. SINTROM [Suspect]
     Indication: COAGULOPATHY
     Dosage: (AS REQUIRED),ORAL
     Route: 048
     Dates: end: 20091024
  5. DIGOXIN [Concomitant]

REACTIONS (5)
  - ANAEMIA [None]
  - DEHYDRATION [None]
  - HAEMATOMA [None]
  - HYPERKALAEMIA [None]
  - RENAL FAILURE ACUTE [None]
